FAERS Safety Report 21775465 (Version 1)
Quarter: 2022Q4

REPORT INFORMATION
  Report Type: Report from Study
  Country: US (occurrence: US)
  Receive Date: 20221226
  Receipt Date: 20221226
  Transmission Date: 20230113
  Serious: Yes (Hospitalization, Other)
  Sender: FDA-Public Use
  Company Number: US-ABBVIE-4246579

PATIENT
  Age: 68 Year
  Sex: Female

DRUGS (1)
  1. HUMIRA [Suspect]
     Active Substance: ADALIMUMAB
     Indication: Colitis ulcerative
     Dosage: STRENGTH 40 MG
     Route: 058
     Dates: start: 20191114

REACTIONS (4)
  - Seizure [Recovered/Resolved]
  - Abdominal pain lower [Recovering/Resolving]
  - Musculoskeletal pain [Not Recovered/Not Resolved]
  - Blood sodium abnormal [Unknown]

NARRATIVE: CASE EVENT DATE: 20221212
